FAERS Safety Report 7883595-5 (Version None)
Quarter: 2011Q4

REPORT INFORMATION
  Report Type: 
  Country: None (occurrence: None)
  Receive Date: 20111102
  Receipt Date: 20111027
  Transmission Date: 20120403
  Serious: Yes (Hospitalization)
  Sender: FDA-Public Use
  Company Number: BE-BRISTOL-MYERS SQUIBB COMPANY-15320740

PATIENT
  Age: 45 Year
  Sex: Female
  Weight: 30 kg

DRUGS (1)
  1. CETUXIMAB [Suspect]
     Indication: HEAD AND NECK CANCER
     Dosage: 2MG/ML.NO OF INFUSIONS:16.MOST RECENT INFUSION ON 25AUG2010.
     Route: 042
     Dates: start: 20100427

REACTIONS (6)
  - DEHYDRATION [None]
  - GASTROINTESTINAL DISORDER [None]
  - HYPOKALAEMIA [None]
  - MALNUTRITION [None]
  - WEIGHT DECREASED [None]
  - VOMITING [None]
